FAERS Safety Report 11475530 (Version 2)
Quarter: 2015Q4

REPORT INFORMATION
  Report Type: Spontaneous
  Country: US (occurrence: US)
  Receive Date: 20150909
  Receipt Date: 20151116
  Transmission Date: 20160304
  Serious: No
  Sender: FDA-Public Use
  Company Number: US-ACTELION PHARMACEUTICALS US, INC.-A-NJ2015-118497

PATIENT
  Age: 60 Year
  Sex: Female

DRUGS (4)
  1. ATARAX [Concomitant]
     Active Substance: HYDROXYZINE\HYDROXYZINE HYDROCHLORIDE
     Dosage: 50 MG, UNK
  2. METHOTREXATE [Concomitant]
     Active Substance: METHOTREXATE
     Dosage: 40 MG, Q1WEEK
  3. VALCHLOR [Suspect]
     Active Substance: MECHLORETHAMINE
     Indication: MYCOSIS FUNGOIDES
     Dosage: 3 TIMES WEEKLY
     Route: 061
     Dates: start: 20150505, end: 201510
  4. ZOLINZA [Concomitant]
     Active Substance: VORINOSTAT

REACTIONS (8)
  - Rash [Unknown]
  - Application site irritation [Unknown]
  - Hyperhidrosis [Unknown]
  - Application site dryness [Not Recovered/Not Resolved]
  - No therapeutic response [Unknown]
  - Application site pruritus [Not Recovered/Not Resolved]
  - Application site discolouration [Not Recovered/Not Resolved]
  - Application site exfoliation [Not Recovered/Not Resolved]
